FAERS Safety Report 13414069 (Version 1)
Quarter: 2017Q2

REPORT INFORMATION
  Report Type: Report from Study
  Country: US (occurrence: US)
  Receive Date: 20170407
  Receipt Date: 20170407
  Transmission Date: 20170830
  Serious: Yes (Other)
  Sender: FDA-Public Use
  Company Number: US-JNJFOC-20170333189

PATIENT
  Sex: Male

DRUGS (3)
  1. ENZALUTAMIDE [Suspect]
     Active Substance: ENZALUTAMIDE
     Indication: PROSTATE CANCER METASTATIC
     Route: 065
  2. DOCETAXEL. [Suspect]
     Active Substance: DOCETAXEL
     Indication: PROSTATE CANCER METASTATIC
     Route: 065
  3. ABIRATERONE ACETATE [Suspect]
     Active Substance: ABIRATERONE ACETATE
     Indication: PROSTATE CANCER METASTATIC
     Route: 048

REACTIONS (12)
  - Peripheral sensory neuropathy [Unknown]
  - Fatigue [Unknown]
  - Neutropenic infection [Unknown]
  - Embolism [Unknown]
  - Febrile neutropenia [Unknown]
  - Neutropenia [Unknown]
  - Stomatitis [Unknown]
  - Peripheral motor neuropathy [Unknown]
  - Thrombocytopenia [Unknown]
  - Diarrhoea [Unknown]
  - Hypersensitivity [Unknown]
  - Anaemia [Unknown]
